FAERS Safety Report 8067475-0 (Version None)
Quarter: 2012Q1

REPORT INFORMATION
  Report Type: 
  Country: None (occurrence: None)
  Receive Date: 20120124
  Receipt Date: 20120119
  Transmission Date: 20120608
  Serious: Yes (Other)
  Sender: FDA-Public Use
  Company Number: GXKR2012DE000626

PATIENT

DRUGS (1)
  1. RAMIPRIL+HYDROCHLOROTHIAZIDE [Suspect]
     Indication: HYPERTENSION
     Route: 048
     Dates: start: 20090821, end: 20100301

REACTIONS (1)
  - PEYRONIE'S DISEASE [None]
